FAERS Safety Report 9287310 (Version 2)
Quarter: 2013Q3

REPORT INFORMATION
  Report Type: Spontaneous
  Country: US (occurrence: US)
  Receive Date: 20130513
  Receipt Date: 20130710
  Transmission Date: 20140515
  Serious: No
  Sender: FDA-Public Use
  Company Number: US-009507513-1305USA003255

PATIENT
  Age: 60 Year
  Sex: Male
  Weight: 68.93 kg

DRUGS (10)
  1. VICTRELIS [Suspect]
     Dosage: 800 MG, TID
     Route: 048
  2. PEGINTRON [Suspect]
     Dosage: 120 MICROGRAM, QW
     Route: 058
  3. RIBAPAK [Suspect]
     Dosage: 1000/DAY
  4. NEXIUM [Concomitant]
     Dosage: UNK MG, UNK
  5. CELEBREX [Concomitant]
     Dosage: UNK MG, UNK
  6. DEXILANT [Concomitant]
     Dosage: UNK MG, UNK
  7. SOTALOL HYDROCHLORIDE [Concomitant]
     Dosage: UNK MG, UNK
  8. ASPIRIN [Concomitant]
     Dosage: UNK MG, UNK
  9. KLONOPIN [Concomitant]
     Dosage: UNK MG, UNK
  10. SKELAXIN [Concomitant]
     Dosage: UNK MG, UNK

REACTIONS (10)
  - Skin exfoliation [Unknown]
  - Pruritus [Unknown]
  - Erythema [Unknown]
  - Dry skin [Unknown]
  - Poor quality sleep [Unknown]
  - Mood altered [Unknown]
  - Fatigue [Unknown]
  - Dizziness [Unknown]
  - Nausea [Unknown]
  - Vomiting [Unknown]
